FAERS Safety Report 8018555-7 (Version None)
Quarter: 2012Q1

REPORT INFORMATION
  Report Type: 
  Country: None (occurrence: None)
  Receive Date: 20120103
  Receipt Date: 20111227
  Transmission Date: 20120608
  Serious: Yes (Death, Other)
  Sender: FDA-Public Use
  Company Number: JP-BAYER-200912456BYL

PATIENT
  Age: 64 Year
  Sex: Male

DRUGS (13)
  1. ASPIRIN [Suspect]
     Indication: THROMBOSIS PROPHYLAXIS
  2. AMPICILLIN [Concomitant]
     Indication: PYREXIA
  3. DOPAMINE HCL [Concomitant]
  4. ASPIRIN [Suspect]
     Indication: CORONARY ARTERIAL STENT INSERTION
  5. TICLOPIDINE HCL [Suspect]
     Indication: THROMBOSIS PROPHYLAXIS
  6. HEPARIN SODIUM [Suspect]
     Indication: CORONARY ARTERY THROMBOSIS
     Dosage: 10000 U, ONCE
     Route: 040
  7. HEPARIN SODIUM [Suspect]
     Indication: CORONARY ARTERIAL STENT INSERTION
     Dosage: UNK, CONT
     Route: 042
  8. ASPIRIN [Suspect]
     Indication: ACUTE MYOCARDIAL INFARCTION
     Dosage: 100 MG, QD
     Route: 048
  9. SULBACTAM [Concomitant]
     Indication: PYREXIA
  10. TICLOPIDINE HCL [Suspect]
     Indication: ACUTE MYOCARDIAL INFARCTION
     Dosage: 200 MG, QD
     Route: 048
  11. TICLOPIDINE HCL [Suspect]
     Indication: CORONARY ARTERIAL STENT INSERTION
  12. OMEPRAZOLE [Concomitant]
  13. NIFEKALANT [Concomitant]
     Indication: VENTRICULAR FIBRILLATION
     Route: 042

REACTIONS (2)
  - PLATELET COUNT DECREASED [None]
  - PULMONARY ALVEOLAR HAEMORRHAGE [None]
